FAERS Safety Report 22225483 (Version 3)
Quarter: 2024Q1

REPORT INFORMATION
  Report Type: Report from Study
  Country: ES (occurrence: ES)
  Receive Date: 20230418
  Receipt Date: 20240110
  Transmission Date: 20240410
  Serious: Yes (Life-Threatening, Hospitalization)
  Sender: FDA-Public Use
  Company Number: None

PATIENT
  Age: 66 Year
  Sex: Male

DRUGS (5)
  1. CARBOPLATIN [Suspect]
     Active Substance: CARBOPLATIN
     Indication: Squamous cell carcinoma of lung
     Dosage: 6 MG/ML/MIN,ONCE EVERY 3 WEEKS
     Route: 042
     Dates: start: 20211006, end: 20220119
  2. PACLITAXEL [Suspect]
     Active Substance: PACLITAXEL
     Indication: Squamous cell carcinoma of lung
     Dosage: 200 MG/M2, ONCE EVERY 3 WEEKS
     Route: 042
     Dates: start: 20220907, end: 20221102
  3. MOXIFLOXACIN [Suspect]
     Active Substance: MOXIFLOXACIN
     Indication: Squamous cell carcinoma of lung
     Dosage: 400 MG, 1X/DAY
     Route: 048
     Dates: start: 20221115, end: 20221119
  4. SULFAMETHOXAZOLE\TRIMETHOPRIM [Suspect]
     Active Substance: SULFAMETHOXAZOLE\TRIMETHOPRIM
     Indication: Squamous cell carcinoma of lung
     Dosage: 160MG/800MG, ALTERNATE DAY (3 TIMES PER WEEK)
     Route: 048
     Dates: start: 20221007, end: 20221125
  5. PEMBROLIZUMAB [Suspect]
     Active Substance: PEMBROLIZUMAB
     Indication: Squamous cell carcinoma of lung
     Dosage: 200 MG, EVERY 3 WEEKS
     Route: 042
     Dates: start: 20211006, end: 20221102

REACTIONS (1)
  - Toxic epidermal necrolysis [Recovering/Resolving]

NARRATIVE: CASE EVENT DATE: 20221122
